FAERS Safety Report 10205949 (Version 2)
Quarter: 2014Q3

REPORT INFORMATION
  Report Type: Spontaneous
  Country: GB (occurrence: GB)
  Receive Date: 20140530
  Receipt Date: 20140703
  Transmission Date: 20150326
  Serious: Yes (Other)
  Sender: FDA-Public Use
  Company Number: GB-BRISTOL-MYERS SQUIBB COMPANY-20786216

PATIENT
  Age: 79 Year
  Sex: Male

DRUGS (12)
  1. RAMIPRIL. [Concomitant]
     Active Substance: RAMIPRIL
  2. ATORVASTATIN [Concomitant]
     Active Substance: ATORVASTATIN
  3. BISOPROLOL [Concomitant]
     Active Substance: BISOPROLOL
  4. CLOPIDOGREL BISULFATE. [Suspect]
     Active Substance: CLOPIDOGREL BISULFATE
     Indication: ANTIPLATELET THERAPY
     Route: 048
     Dates: start: 201305
  5. ASPIRIN. [Suspect]
     Active Substance: ASPIRIN
     Indication: PERCUTANEOUS CORONARY INTERVENTION
     Route: 048
     Dates: start: 201306
  6. PREDNISOLONE. [Concomitant]
     Active Substance: PREDNISOLONE
  7. ELIQUIS [Suspect]
     Active Substance: APIXABAN
     Indication: CEREBROVASCULAR ACCIDENT PROPHYLAXIS
     Dosage: DOSE REDUCED:2.5 MG
     Route: 048
     Dates: start: 201307, end: 20140328
  8. AMLODIPINE [Concomitant]
     Active Substance: AMLODIPINE BESYLATE
  9. LANSOPRAZOLE. [Concomitant]
     Active Substance: LANSOPRAZOLE
  10. CLOPIDOGREL BISULFATE. [Suspect]
     Active Substance: CLOPIDOGREL BISULFATE
     Indication: PERCUTANEOUS CORONARY INTERVENTION
     Route: 048
     Dates: start: 201305
  11. ELIQUIS [Suspect]
     Active Substance: APIXABAN
     Indication: ATRIAL FIBRILLATION
     Dosage: DOSE REDUCED:2.5 MG
     Route: 048
     Dates: start: 201307, end: 20140328
  12. ALFUZOSIN [Concomitant]
     Active Substance: ALFUZOSIN

REACTIONS (5)
  - Haemorrhage [Not Recovered/Not Resolved]
  - Purpura [Not Recovered/Not Resolved]
  - Ecchymosis [Not Recovered/Not Resolved]
  - Drug administration error [Unknown]
  - Contraindication to medical treatment [Unknown]
